FAERS Safety Report 5366411-5 (Version None)
Quarter: 2007Q2

REPORT INFORMATION
  Report Type: 
  Country: None (occurrence: None)
  Receive Date: 20070619
  Receipt Date: 20070611
  Transmission Date: 20071010
  Serious: Yes (Death, Hospitalization)
  Sender: FDA-Public Use
  Company Number: 163-21880-07040186

PATIENT
  Age: 63 Year
  Sex: Male

DRUGS (11)
  1. REVLIMID [Suspect]
     Indication: MULTIPLE MYELOMA
     Dosage: 25 MG, DAILY X3 WEEKS/1 WEEK OFF, ORAL
     Route: 048
     Dates: start: 20060901, end: 20070301
  2. DEXAMETHASONE TAB [Suspect]
     Indication: MULTIPLE MYELOMA
     Dosage: 40 MG, PULSE X4 DAYS EACH MONTH, UNKNOWN
     Dates: start: 20060901, end: 20070101
  3. ASPIRIN [Concomitant]
  4. FINASTERIDE [Concomitant]
  5. ONDANSETRON HCL [Concomitant]
  6. PINDOLOL [Concomitant]
  7. FLORINEF [Concomitant]
  8. SIMVASTATIN [Concomitant]
  9. MORPHINE [Concomitant]
  10. DOCUSATE (DOCUSATE) [Concomitant]
  11. PHENERGAN HCL [Concomitant]

REACTIONS (27)
  - ACUTE RESPIRATORY FAILURE [None]
  - ASTHENIA [None]
  - BLOOD CALCIUM DECREASED [None]
  - BLOOD CHLORIDE INCREASED [None]
  - BLOOD GLUCOSE INCREASED [None]
  - BLOOD POTASSIUM DECREASED [None]
  - BODY TEMPERATURE INCREASED [None]
  - BRAIN NATRIURETIC PEPTIDE INCREASED [None]
  - CHEST PAIN [None]
  - CHEST X-RAY ABNORMAL [None]
  - COMPUTERISED TOMOGRAM ABNORMAL [None]
  - DYSPNOEA [None]
  - ELECTROCARDIOGRAM POOR R-WAVE PROGRESSION [None]
  - FAILURE TO THRIVE [None]
  - FEBRILE NEUTROPENIA [None]
  - HYPERHIDROSIS [None]
  - LEFT ATRIAL DILATATION [None]
  - MALIGNANT NEOPLASM PROGRESSION [None]
  - MENTAL STATUS CHANGES [None]
  - METASTASES TO CENTRAL NERVOUS SYSTEM [None]
  - MULTIPLE MYELOMA [None]
  - NEUTROPHIL COUNT DECREASED [None]
  - PANCYTOPENIA [None]
  - PLEURAL EFFUSION [None]
  - PNEUMONIA [None]
  - SPINAL FRACTURE [None]
  - STRESS [None]
